FAERS Safety Report 23460824 (Version 1)
Quarter: 2024Q1

REPORT INFORMATION
  Report Type: Spontaneous
  Country: FR (occurrence: FR)
  Receive Date: 20240131
  Receipt Date: 20240131
  Transmission Date: 20240410
  Serious: Yes (Other)
  Sender: FDA-Public Use
  Company Number: FR-AMGEN-FRASP2024014274

PATIENT
  Age: 15 Year
  Sex: Male

DRUGS (1)
  1. ADALIMUMAB [Suspect]
     Active Substance: ADALIMUMAB\ISOPROPYL ALCOHOL
     Indication: Crohn^s disease
     Dosage: UNK, (FOR TWO-YEARS)
     Route: 065

REACTIONS (3)
  - Crohn^s disease [Recovered/Resolved]
  - Blepharitis [Recovered/Resolved]
  - Drug ineffective [Recovered/Resolved]
